FAERS Safety Report 7746699-3 (Version None)
Quarter: 2011Q3

REPORT INFORMATION
  Report Type: 
  Country: None (occurrence: None)
  Receive Date: 20110908
  Receipt Date: 20110831
  Transmission Date: 20111222
  Serious: Yes (Death)
  Sender: FDA-Public Use
  Company Number: 1000022830

PATIENT
  Age: 77 Year
  Sex: Male
  Weight: 62 kg

DRUGS (25)
  1. CORTISONE (CORTISONE) (CORTISONE) [Concomitant]
  2. CARTIA (DILTIAZEM) (DILTIAZEM) [Concomitant]
  3. PROVENTIL (ALBUTEROL) (ALBUTEROL) [Concomitant]
  4. LIPITOR [Concomitant]
  5. CLOTRIMAZOLE (CLOTRIMAZOLE) (CLOTRIMAZOLE) [Concomitant]
  6. VITAMIN E (VITAMIN E ) (VITAMIN E) [Concomitant]
  7. OMEGA NOS(OMEGA NOS) (OMEGA NOS) [Concomitant]
  8. DALIRESP [Suspect]
     Indication: CHRONIC OBSTRUCTIVE PULMONARY DISEASE
     Dosage: 500 MCG (500 MCG, 1 IN 1 D), ORAL
     Route: 048
     Dates: start: 20110701, end: 20110101
  9. SPIRIVA (TIOTROPIUM BROMIDE) ( TIOTROPIUM BROMIDE) [Concomitant]
  10. SINGULAIR (MONTELUKAST SODIUM) (MONTELUKAST SODIUM) [Concomitant]
  11. PLAVIX (CLOPIDOGREL BISULFATE) (CLOPIDOGREL BISULFATE) [Concomitant]
  12. FOSAMAX [Concomitant]
  13. ACETYLCYSTEINE (ACETYLCYSTEINE) (ACETYLCYSTEINE) [Concomitant]
  14. ZYRTEC [Concomitant]
  15. COENZYME Q10 (UBIDECARENONE) (UBIDECARENONE) [Concomitant]
  16. ZANTAC [Concomitant]
  17. PULMICORT (BUDESONIDE) (BUDESONIDE) [Concomitant]
  18. HYTRIN [Concomitant]
  19. ZOLOFT [Concomitant]
  20. PROSCAR (FINASTERIDE) (FINASTERIDE) [Concomitant]
  21. FLOVENT (FLUTICASONE PROPIONATE) (FLUTICASONE PROPIONATE) [Concomitant]
  22. ASPIRIN [Concomitant]
  23. PERFOROMIST (FORMOTEROL FUMARATE) (FORMOTEROL FUMARATE) [Concomitant]
  24. CALCIUM (CALCIUM) (CALCIUM) [Concomitant]
  25. ACIDOPHILIS (LACTOBACILLUS ACIDOPHILUS) (LACTBACILLUS ACIDOPHILUS) [Concomitant]

REACTIONS (9)
  - HYPONATRAEMIA [None]
  - CHRONIC OBSTRUCTIVE PULMONARY DISEASE [None]
  - DYSPNOEA [None]
  - CONDITION AGGRAVATED [None]
  - DIASTOLIC DYSFUNCTION [None]
  - ATRIAL FIBRILLATION [None]
  - PNEUMONIA [None]
  - OEDEMA PERIPHERAL [None]
  - CARDIAC FAILURE CONGESTIVE [None]
